FAERS Safety Report 14493527 (Version 2)
Quarter: 2018Q1

REPORT INFORMATION
  Report Type: Report from Study
  Country: JP (occurrence: JP)
  Receive Date: 20180206
  Receipt Date: 20180307
  Transmission Date: 20180509
  Serious: Yes (Hospitalization)
  Sender: FDA-Public Use
  Company Number: JP-DSJP-DSJ-2018-104427

PATIENT

DRUGS (17)
  1. EDOXABAN [Suspect]
     Active Substance: EDOXABAN TOSYLATE
     Indication: ATRIAL FIBRILLATION
     Dosage: 30 MG, QD
     Route: 048
     Dates: start: 20161110
  2. HEPARIN [Concomitant]
     Active Substance: HEPARIN SODIUM
     Dosage: 10ML/DAY
     Route: 042
     Dates: start: 20170524, end: 20170524
  3. NESINA [Concomitant]
     Active Substance: ALOGLIPTIN BENZOATE
     Dosage: 25MG/DAY
     Route: 048
     Dates: end: 20170330
  4. FUROSEMIDE. [Concomitant]
     Active Substance: FUROSEMIDE
     Dosage: 20MG/DAY
     Route: 048
     Dates: start: 20170612
  5. AZILVA [Concomitant]
     Active Substance: AZILSARTAN KAMEDOXOMIL
     Indication: ATRIAL FIBRILLATION
     Dosage: 40MG/DAY
     Route: 048
     Dates: start: 20170202, end: 20170611
  6. CANDESARTAN                        /01349502/ [Concomitant]
     Active Substance: CANDESARTAN
     Dosage: 8MG/DAY
     Route: 048
     Dates: end: 20170201
  7. RENIVACE [Concomitant]
     Active Substance: ENALAPRIL
     Dosage: 3.125MG/DAY
     Route: 048
     Dates: start: 20170114, end: 20170202
  8. METGLUCO [Concomitant]
     Active Substance: METFORMIN HYDROCHLORIDE
     Dosage: 500MG/DAY
     Route: 048
  9. FEBURIC [Concomitant]
     Active Substance: FEBUXOSTAT
     Dosage: 20MG/DAY
     Route: 048
  10. FUROSEMIDE. [Concomitant]
     Active Substance: FUROSEMIDE
     Dosage: 20MG/DAY
     Route: 048
     Dates: start: 20161107, end: 20170113
  11. BISONO [Concomitant]
     Active Substance: BISOPROLOL
     Dosage: 8MG/DAY
     Route: 050
     Dates: start: 20161107, end: 20170113
  12. TRAZENTA [Concomitant]
     Active Substance: LINAGLIPTIN
     Dosage: 5MG/DAY
     Route: 048
     Dates: start: 20170331
  13. FUROSEMIDE. [Concomitant]
     Active Substance: FUROSEMIDE
     Dosage: 40MG/DAY
     Route: 048
     Dates: start: 20170114, end: 20170611
  14. ACTOS [Concomitant]
     Active Substance: PIOGLITAZONE HYDROCHLORIDE
     Dosage: 15MG/DAY
     Route: 048
  15. BISONO [Concomitant]
     Active Substance: BISOPROLOL
     Dosage: 4MG/DAY
     Route: 050
     Dates: start: 20170114, end: 20170201
  16. NORVASC [Concomitant]
     Active Substance: AMLODIPINE BESYLATE
     Dosage: 5MG/DAY
     Route: 048
  17. MAINTATE [Concomitant]
     Active Substance: BISOPROLOL FUMARATE
     Dosage: 1.25MG/DAY
     Route: 048
     Dates: start: 20170202

REACTIONS (2)
  - Gastric ulcer haemorrhage [Recovering/Resolving]
  - Gastric cancer [Recovered/Resolved]

NARRATIVE: CASE EVENT DATE: 20170403
